FAERS Safety Report 23629151 (Version 4)
Quarter: 2025Q1

REPORT INFORMATION
  Report Type: Spontaneous
  Country: JP (occurrence: JP)
  Receive Date: 20240313
  Receipt Date: 20250321
  Transmission Date: 20250408
  Serious: Yes (Disabling)
  Sender: EISAI
  Company Number: JP-Eisai-202314812_LEN-EC_P_1

PATIENT
  Sex: Female

DRUGS (2)
  1. LENVATINIB [Suspect]
     Active Substance: LENVATINIB
     Indication: Endometrial cancer
     Route: 048
  2. KEYTRUDA [Concomitant]
     Active Substance: PEMBROLIZUMAB
     Indication: Endometrial cancer

REACTIONS (4)
  - Cerebral infarction [Recovered/Resolved with Sequelae]
  - Hypothyroidism [Unknown]
  - Hypertension [Unknown]
  - Malaise [Unknown]
